FAERS Safety Report 5811830-3 (Version None)
Quarter: 2008Q3

REPORT INFORMATION
  Report Type: 
  Country: None (occurrence: None)
  Receive Date: 20080715
  Receipt Date: 20080715
  Transmission Date: 20090109
  Serious: Yes (Life-Threatening, Hospitalization)
  Sender: FDA-Public Use
  Company Number: None

PATIENT
  Age: 82 Year

DRUGS (1)
  1. ATENOLOL [Suspect]

REACTIONS (2)
  - CARDIAC DISORDER [None]
  - HEART RATE DECREASED [None]
